FAERS Safety Report 10526375 (Version 3)
Quarter: 2016Q1

REPORT INFORMATION
  Report Type: Report from Study
  Country: AR (occurrence: AR)
  Receive Date: 20141019
  Receipt Date: 20160216
  Transmission Date: 20160525
  Serious: Yes (Other)
  Sender: FDA-Public Use
  Company Number: AR-BRISTOL-MYERS SQUIBB COMPANY-21483847

PATIENT
  Age: 15 Year
  Sex: Female

DRUGS (1)
  1. ABATACEPT [Suspect]
     Active Substance: ABATACEPT
     Indication: RHEUMATOID ARTHRITIS
     Dosage: 250 MG, Q4WK
     Route: 042
     Dates: start: 20120426

REACTIONS (6)
  - Nasopharyngitis [Recovering/Resolving]
  - Mumps [Not Recovered/Not Resolved]
  - Syncope [Unknown]
  - Catarrh [Recovering/Resolving]
  - Headache [Unknown]
  - Nausea [Unknown]

NARRATIVE: CASE EVENT DATE: 20141008
